FAERS Safety Report 8241731-5 (Version None)
Quarter: 2012Q1

REPORT INFORMATION
  Report Type: 
  Country: None (occurrence: None)
  Receive Date: 20120328
  Receipt Date: 20120323
  Transmission Date: 20120608
  Serious: Yes (Other)
  Sender: FDA-Public Use
  Company Number: US-PFIZER INC-2012076080

PATIENT
  Sex: Male
  Weight: 81.633 kg

DRUGS (3)
  1. NEURONTIN [Suspect]
     Indication: CONVULSION
     Dosage: 400 MG, 4X/DAY
  2. TEGRETOL [Concomitant]
     Indication: CONVULSION
     Dosage: 200 MG, 4X/DAY
  3. DILANTIN [Concomitant]
     Indication: CONVULSION
     Dosage: 100 MG, 4X/DAY

REACTIONS (1)
  - CATARACT [None]
